FAERS Safety Report 8448091 (Version 4)
Quarter: 2013Q4

REPORT INFORMATION
  Report Type: Report from Study
  Country: US (occurrence: US)
  Receive Date: 20120308
  Receipt Date: 20131204
  Transmission Date: 20140711
  Serious: Yes (Hospitalization, Other)
  Sender: FDA-Public Use
  Company Number: US-ROCHE-GNE323858

PATIENT
  Age: 37 Year
  Sex: Female
  Weight: 68.55 kg

DRUGS (11)
  1. OMALIZUMAB [Suspect]
     Indication: ASTHMA
     Dosage: UNKNOWN, MOST RECENT DOSE WAS 11  AUG 2011
     Route: 058
     Dates: start: 20110519
  2. OMALIZUMAB [Suspect]
     Route: 058
     Dates: start: 20111116
  3. OMALIZUMAB [Suspect]
     Route: 058
     Dates: start: 20120130
  4. OMALIZUMAB [Suspect]
     Dosage: 1ST TRIMESTER
     Route: 058
     Dates: start: 20110815
  5. OMALIZUMAB [Suspect]
     Dosage: 8 WEEKS PRIOR TO CONCEPTION
     Route: 058
     Dates: start: 20110620
  6. OMALIZUMAB [Suspect]
     Route: 058
     Dates: start: 20110912
  7. OMALIZUMAB [Suspect]
     Dosage: THIRD TRIMESTER
     Route: 058
     Dates: start: 20120227
  8. OMALIZUMAB [Suspect]
     Route: 058
     Dates: start: 20120326, end: 20120326
  9. SINGULAIR [Concomitant]
     Indication: ASTHMA
  10. SYMBICORT [Concomitant]
     Indication: ASTHMA
  11. ALBUTEROL [Concomitant]

REACTIONS (3)
  - Gestational diabetes [Unknown]
  - Vaginal haemorrhage [Recovered/Resolved]
  - Exposure during pregnancy [Unknown]
